FAERS Safety Report 10707367 (Version 1)
Quarter: 2015Q1

REPORT INFORMATION
  Report Type: Spontaneous
  Country: US (occurrence: None)
  Receive Date: 20150112
  Receipt Date: 20150112
  Transmission Date: 20150721
  Serious: Yes (Life-Threatening)
  Sender: FDA-Public Use
  Company Number: None

PATIENT
  Age: 57 Year
  Sex: Male
  Weight: 101.61 kg

DRUGS (1)
  1. MULTIHANCE [Suspect]
     Active Substance: GADOBENATE DIMEGLUMINE
     Indication: RENAL DISORDER
     Dosage: 2CCPER SEC.
     Route: 042
     Dates: start: 20150110

REACTIONS (6)
  - Mental status changes [None]
  - Feeling hot [None]
  - Hypersensitivity [None]
  - Tremor [None]
  - Unresponsive to stimuli [None]
  - Sneezing [None]

NARRATIVE: CASE EVENT DATE: 20150110
